FAERS Safety Report 4644035-2 (Version None)
Quarter: 2005Q2

REPORT INFORMATION
  Report Type: 
  Country: None (occurrence: None)
  Receive Date: 20050425
  Receipt Date: 20040427
  Transmission Date: 20051028
  Serious: Yes (Hospitalization)
  Sender: FDA-Public Use
  Company Number: US-ROCHE-365719

PATIENT
  Age: 64 Year
  Sex: Female

DRUGS (19)
  1. CAPECITABINE [Suspect]
     Indication: METASTATIC RENAL CELL CARCINOMA
     Dosage: ACTUAL DOSE WAS 300 MG DAILY ADMINISTERED FROM DAY ONE TO DAY 21.
     Route: 065
     Dates: start: 20040301, end: 20040329
  2. CAPECITABINE [Suspect]
     Route: 065
     Dates: start: 20040409, end: 20040423
  3. GEMCITABINE [Suspect]
     Indication: METASTATIC RENAL CELL CARCINOMA
     Dosage: ADMINISTERED ON DAYS 1, 8 AND 15 OF THE CYCLE.  ACTUAL DOSE RECEIVED WAS 1860 MG.
     Route: 042
     Dates: start: 20040301
  4. EVISTA [Concomitant]
  5. GLUCOPHAGE [Concomitant]
  6. ATENOLOL [Concomitant]
  7. AMITRIPTYLINE HCL TAB [Concomitant]
     Dosage: AT BEDTIME.
  8. ZYRTEC [Concomitant]
  9. IMITREX [Concomitant]
  10. HYDROCODONE BITARTRATE [Concomitant]
  11. XANAX [Concomitant]
  12. AMBIEN [Concomitant]
  13. MULTIVITAMINES [Concomitant]
  14. VITAMINE B6 [Concomitant]
  15. REGLAN [Concomitant]
     Indication: NAUSEA
  16. SYNTHROID [Concomitant]
  17. VITAMIN B-12 [Concomitant]
  18. VITAMIN E [Concomitant]
  19. BETACAROTENE [Concomitant]

REACTIONS (17)
  - ABDOMINAL ADHESIONS [None]
  - ABDOMINAL PAIN [None]
  - ACUTE SINUSITIS [None]
  - ALOPECIA [None]
  - BACTERIAL INFECTION [None]
  - BLOOD ALKALINE PHOSPHATASE INCREASED [None]
  - BRONCHITIS ACUTE [None]
  - DEHYDRATION [None]
  - DIARRHOEA [None]
  - HEPATIC ENZYME INCREASED [None]
  - MUCOSAL INFLAMMATION [None]
  - NEUTROPHIL COUNT DECREASED [None]
  - PALMAR-PLANTAR ERYTHRODYSAESTHESIA SYNDROME [None]
  - PULMONARY MASS [None]
  - SMALL INTESTINAL OBSTRUCTION [None]
  - STOMATITIS [None]
  - VOMITING [None]
